FAERS Safety Report 7651399-4 (Version None)
Quarter: 2011Q3

REPORT INFORMATION
  Report Type: 
  Country: None (occurrence: None)
  Receive Date: 20110802
  Receipt Date: 20110722
  Transmission Date: 20111222
  Serious: No
  Sender: FDA-Public Use
  Company Number: PHHY2010JP84844

PATIENT
  Sex: Male
  Weight: 55 kg

DRUGS (10)
  1. EXJADE [Suspect]
     Indication: IRON OVERLOAD
     Dosage: 1125 MG, QD
     Route: 048
     Dates: start: 20080709, end: 20080918
  2. NEORAL [Concomitant]
     Indication: MYELODYSPLASTIC SYNDROME
     Dosage: 50 MG, UNK
     Route: 048
     Dates: start: 20090226, end: 20090526
  3. SELBEX [Concomitant]
     Indication: PROPHYLAXIS
     Dosage: 50 MG, UNK
     Route: 048
     Dates: end: 20090716
  4. LANSOPRAZOLE [Concomitant]
     Indication: PROPHYLAXIS
     Dosage: 30 MG, UNK
     Route: 048
     Dates: end: 20100716
  5. ERISPAN [Concomitant]
     Dosage: 0.75 MG, UNK
     Route: 048
     Dates: start: 20090127, end: 20090716
  6. FORSENID [Concomitant]
     Dosage: 12 MG, UNK
     Route: 048
     Dates: end: 20090716
  7. EXJADE [Suspect]
     Dosage: 1000 MG, QD
     Route: 048
     Dates: start: 20081127, end: 20090716
  8. LASIX [Concomitant]
     Dosage: 40 MG, UNK
     Route: 048
     Dates: end: 20090716
  9. ENALAPRIL MALEATE [Concomitant]
     Indication: HYPERTENSION
     Dosage: 2.5 MG, UNK
     Route: 048
     Dates: end: 20090716
  10. LOXOPROFEN SODIUM [Concomitant]
     Indication: BACK PAIN
     Dosage: 60 MG, UNK
     Route: 048
     Dates: end: 20090716

REACTIONS (4)
  - NAUSEA [None]
  - BACK PAIN [None]
  - ABDOMINAL DISTENSION [None]
  - TINNITUS [None]
